FAERS Safety Report 7764796-3 (Version None)
Quarter: 2011Q3

REPORT INFORMATION
  Report Type: 
  Country: None (occurrence: None)
  Receive Date: 20110921
  Receipt Date: 20110921
  Transmission Date: 20111222
  Serious: Yes (Life-Threatening)
  Sender: FDA-Public Use
  Company Number: None

PATIENT
  Age: 72 Year
  Sex: Female
  Weight: 96.615 kg

DRUGS (1)
  1. ZETIA [Suspect]
     Indication: BLOOD CHOLESTEROL INCREASED
     Dosage: 10MG
     Route: 048
     Dates: start: 20110825, end: 20110914

REACTIONS (7)
  - GLOSSODYNIA [None]
  - SINUSITIS [None]
  - ASTHENIA [None]
  - MYALGIA [None]
  - PHARYNGEAL OEDEMA [None]
  - SICK RELATIVE [None]
  - FATIGUE [None]
